FAERS Safety Report 4708278-1 (Version None)
Quarter: 2005Q3

REPORT INFORMATION
  Report Type: 
  Country: None (occurrence: None)
  Receive Date: 20050705
  Receipt Date: 20050705
  Transmission Date: 20060218
  Serious: Yes (Other)
  Sender: FDA-Public Use
  Company Number: None

PATIENT
  Age: 51 Year
  Sex: Female
  Weight: 61.6892 kg

DRUGS (1)
  1. CELEBREX [Suspect]
     Dosage: 200MG PARENTERAL
     Route: 051
     Dates: start: 20050630, end: 20050702

REACTIONS (2)
  - DYSPEPSIA [None]
  - HAEMATEMESIS [None]
